FAERS Safety Report 5976460-1 (Version None)
Quarter: 2008Q4

REPORT INFORMATION
  Report Type: 
  Country: None (occurrence: None)
  Receive Date: 20081202
  Receipt Date: 20081121
  Transmission Date: 20090506
  Serious: Yes (Death)
  Sender: FDA-Public Use
  Company Number: US-GENENTECH-272444

PATIENT

DRUGS (2)
  1. AVASTIN [Suspect]
     Indication: COLORECTAL CANCER METASTATIC
     Route: 042
  2. CHEMOTHERAPY NOS [Suspect]
     Indication: COLORECTAL CANCER METASTATIC

REACTIONS (2)
  - MULTI-ORGAN FAILURE [None]
  - SEPSIS [None]
